FAERS Safety Report 7199104-2 (Version None)
Quarter: 2010Q4

REPORT INFORMATION
  Report Type: 
  Country: None (occurrence: None)
  Receive Date: 20101126
  Receipt Date: 20101008
  Transmission Date: 20110411
  Serious: Yes (Hospitalization)
  Sender: FDA-Public Use
  Company Number: CIP07000773

PATIENT
  Age: 80 Year
  Sex: Female

DRUGS (17)
  1. ACTONEL [Suspect]
     Indication: OSTEOPENIA
     Dosage: 35 MG ONCE WEEKLY, ORAL
     Route: 048
     Dates: start: 20060701, end: 20070401
  2. FOSAMAX [Suspect]
     Indication: OSTEOPOROSIS
     Dosage: 70 MG ONCE WEEKLY, ORAL
     Route: 048
     Dates: start: 20010420, end: 20060601
  3. DIGOXIN [Concomitant]
  4. VERAPAMIL [Concomitant]
  5. COUMADIN [Concomitant]
  6. SYNTHROID [Concomitant]
  7. HYROXYCHLOROQUINE (HYDROXYCHLOROQUINE) [Concomitant]
  8. ALPRAZOLAM [Concomitant]
  9. TRIAMCINOLONE [Concomitant]
  10. LEVAQUIN [Concomitant]
  11. FUROSEMIDE [Concomitant]
  12. POTASSIUM CHLORIDE [Concomitant]
  13. CALCIUM (CALCIUM) [Concomitant]
  14. ERGOCALCIFEROL [Concomitant]
  15. PREDNISONE TAB [Concomitant]
  16. AMOXICILLIN [Concomitant]
  17. AZITHROMYCIN [Concomitant]

REACTIONS (5)
  - BONE LESION [None]
  - GINGIVAL PAIN [None]
  - IMPAIRED HEALING [None]
  - JAW DISORDER [None]
  - OSTEONECROSIS OF JAW [None]
